FAERS Safety Report 14340398 (Version 1)
Quarter: 2018Q1

REPORT INFORMATION
  Report Type: Report from Study
  Country: US (occurrence: US)
  Receive Date: 20180101
  Receipt Date: 20180101
  Transmission Date: 20180509
  Serious: Yes (Hospitalization)
  Sender: FDA-Public Use
  Company Number: US-ASTRAZENECA-2017SF12655

PATIENT
  Age: 745 Month
  Sex: Female
  Weight: 96.7 kg

DRUGS (3)
  1. AZD2281 [Suspect]
     Active Substance: OLAPARIB
     Indication: OVARIAN EPITHELIAL CANCER
     Route: 048
     Dates: start: 20171011
  2. LISINOPRIL. [Concomitant]
     Active Substance: LISINOPRIL
     Route: 065
  3. AZD2171 [Suspect]
     Active Substance: CEDIRANIB
     Indication: OVARIAN EPITHELIAL CANCER
     Route: 048
     Dates: start: 20171011, end: 20171012

REACTIONS (2)
  - Hypertension [Recovering/Resolving]
  - Non-cardiac chest pain [Recovering/Resolving]

NARRATIVE: CASE EVENT DATE: 20171012
